FAERS Safety Report 6835883-9 (Version None)
Quarter: 2010Q3

REPORT INFORMATION
  Report Type: 
  Country: None (occurrence: None)
  Receive Date: 20100713
  Receipt Date: 20100706
  Transmission Date: 20110219
  Serious: Yes (Death, Other)
  Sender: FDA-Public Use
  Company Number: SG-CELGENEUS-141-21880-10070334

PATIENT
  Sex: Male

DRUGS (12)
  1. REVLIMID [Suspect]
     Indication: MULTIPLE MYELOMA
     Route: 048
  2. VINCRISTINE [Concomitant]
     Indication: MULTIPLE MYELOMA
     Route: 065
     Dates: start: 20100414, end: 20100429
  3. VINCRISTINE [Concomitant]
     Route: 065
     Dates: start: 20100516
  4. VINCRISTINE [Concomitant]
     Route: 065
     Dates: start: 20100609
  5. ADRIAMYCIN PFS [Concomitant]
     Indication: MULTIPLE MYELOMA
     Route: 065
     Dates: start: 20100414, end: 20100429
  6. ADRIAMYCIN PFS [Concomitant]
     Route: 065
     Dates: start: 20100516
  7. ADRIAMYCIN PFS [Concomitant]
     Route: 065
     Dates: start: 20100609
  8. DEXAMETHASONE [Concomitant]
     Indication: MULTIPLE MYELOMA
     Route: 065
     Dates: start: 20100414, end: 20100429
  9. DEXAMETHASONE [Concomitant]
     Route: 065
     Dates: start: 20100516
  10. DEXAMETHASONE [Concomitant]
     Route: 065
     Dates: start: 20100609
  11. PEGLASTA [Concomitant]
     Indication: PRODUCT USED FOR UNKNOWN INDICATION
     Route: 065
     Dates: end: 20100522
  12. PAMIDRONATE DISODIUM [Concomitant]
     Indication: PRODUCT USED FOR UNKNOWN INDICATION
     Route: 065
     Dates: end: 20100522

REACTIONS (2)
  - PNEUMONIA [None]
  - SEPSIS [None]
